FAERS Safety Report 4444420-8 (Version None)
Quarter: 2004Q3

REPORT INFORMATION
  Report Type: 
  Country: None (occurrence: None)
  Receive Date: 20040902
  Receipt Date: 20040818
  Transmission Date: 20050211
  Serious: Yes (Other)
  Sender: FDA-Public Use
  Company Number: 198044

PATIENT
  Age: 56 Year
  Sex: Female

DRUGS (9)
  1. AVONEX [Suspect]
     Indication: MULTIPLE SCLEROSIS
     Dates: start: 19980901, end: 20031201
  2. NEXIUM [Concomitant]
  3. AMITRIPTYLINE HCL [Concomitant]
  4. MULTI-VITAMINS [Concomitant]
  5. OSCAL [Concomitant]
  6. IMITREX [Concomitant]
  7. VERAPAMIL [Concomitant]
  8. IBUPROFEN [Concomitant]
  9. ORPHENADRINE HYDROCHLORIDE FILM TAB [Concomitant]

REACTIONS (13)
  - ANTINUCLEAR ANTIBODY POSITIVE [None]
  - BACK PAIN [None]
  - HEPATIC FIBROSIS [None]
  - HEPATIC STEATOSIS [None]
  - HEPATITIS [None]
  - IRON BINDING CAPACITY TOTAL INCREASED [None]
  - MIGRAINE WITH AURA [None]
  - MUSCULOSKELETAL STIFFNESS [None]
  - MYOFASCIAL PAIN SYNDROME [None]
  - PAIN IN EXTREMITY [None]
  - PARAESTHESIA [None]
  - RED BLOOD CELL SEDIMENTATION RATE INCREASED [None]
  - TRANSFERRIN SATURATION DECREASED [None]
